FAERS Safety Report 5334334-3 (Version None)
Quarter: 2007Q2

REPORT INFORMATION
  Report Type: 
  Country: None (occurrence: None)
  Receive Date: 20070525
  Receipt Date: 20060731
  Transmission Date: 20071010
  Serious: Yes (Hospitalization, Other)
  Sender: FDA-Public Use
  Company Number: US-BRISTOL-MYERS SQUIBB COMPANY-13460886

PATIENT
  Age: 50 Year
  Sex: Female
  Weight: 69 kg

DRUGS (14)
  1. CYTOXAN [Suspect]
     Indication: BREAST CANCER
     Route: 042
     Dates: start: 20060516, end: 20060516
  2. ADRIAMYCIN PFS [Suspect]
     Indication: BREAST CANCER
     Route: 042
     Dates: start: 20060516, end: 20060516
  3. ALOXI [Suspect]
     Indication: PROPHYLAXIS OF NAUSEA AND VOMITING
     Route: 042
     Dates: start: 20060516, end: 20060516
  4. DECADRON [Concomitant]
  5. EMEND [Concomitant]
  6. NEUPOGEN [Concomitant]
  7. CEFTIN [Concomitant]
  8. PRILOSEC [Concomitant]
  9. ASCORBIC ACID [Concomitant]
  10. VITAMIN D [Concomitant]
  11. ZANTAC [Concomitant]
  12. ZYRTEC [Concomitant]
  13. NORTRIPTYLINE HCL [Concomitant]
  14. PERCOCET [Concomitant]

REACTIONS (1)
  - HYPERSENSITIVITY [None]
